FAERS Safety Report 9486368 (Version 2)
Quarter: 2013Q3

REPORT INFORMATION
  Report Type: Spontaneous
  Country: US (occurrence: US)
  Receive Date: 20130829
  Receipt Date: 20130918
  Transmission Date: 20140515
  Serious: No
  Sender: FDA-Public Use
  Company Number: US-PFIZER INC-2013247488

PATIENT
  Age: 62 Year
  Sex: Male

DRUGS (10)
  1. LYRICA [Suspect]
     Indication: NERVE INJURY
     Dosage: 75 MG, BID
     Route: 048
     Dates: start: 20130729, end: 2013
  2. LYRICA [Suspect]
     Indication: NEURALGIA
  3. MOTRIN [Concomitant]
     Dosage: UNK
  4. VICODIN [Concomitant]
     Dosage: UNK
  5. HYDROCODONE W/ACETAMINOPHEN [Concomitant]
     Indication: PAIN
     Dosage: HYDROCODONE BITARTRATE 7.5 MG, PARACETAMOL 750 MG, BID
  6. MORPHINE [Concomitant]
     Dosage: UNK
  7. CODEINE [Concomitant]
     Dosage: UNK
  8. HYDROCODONE [Concomitant]
     Dosage: UNK
  9. METHADONE [Concomitant]
     Dosage: UNK
  10. OXYCODONE [Concomitant]
     Dosage: UNK

REACTIONS (2)
  - Intentional drug misuse [Unknown]
  - Pain [Unknown]
